FAERS Safety Report 4382352-4 (Version None)
Quarter: 2004Q2

REPORT INFORMATION
  Report Type: 
  Country: None (occurrence: None)
  Receive Date: 20040616
  Receipt Date: 20040608
  Transmission Date: 20050107
  Serious: Yes (Hospitalization)
  Sender: FDA-Public Use
  Company Number: TCI2004A01822

PATIENT
  Age: 67 Year
  Sex: Female

DRUGS (4)
  1. ACTOS [Suspect]
     Indication: DIABETES MELLITUS
     Dosage: 30 MG (30MG, 1 IN 1 D) ; PER ORAL; 2 YEARS BEFOPRE
     Route: 048
     Dates: end: 20040414
  2. BASEN TABLETS 0.3 (VOGLIBOSE) [Concomitant]
  3. GLIMEPIRIDE [Concomitant]
  4. ATORVASTATIN CALCIUM [Concomitant]

REACTIONS (5)
  - LYMPHANGIOSIS CARCINOMATOSA [None]
  - METASTASES TO LUNG [None]
  - OEDEMA PERIPHERAL [None]
  - PLEURAL EFFUSION [None]
  - UTERINE CANCER [None]
